FAERS Safety Report 25117033 (Version 1)
Quarter: 2025Q1

REPORT INFORMATION
  Report Type: Spontaneous
  Country: GB (occurrence: GB)
  Receive Date: 20250325
  Receipt Date: 20250325
  Transmission Date: 20250409
  Serious: Yes (Other)
  Sender: ORGANON
  Company Number: None

PATIENT
  Age: 41 Year
  Sex: Male
  Weight: 60 kg

DRUGS (2)
  1. FINASTERIDE [Suspect]
     Active Substance: FINASTERIDE
     Indication: Alopecia
     Dates: start: 20240115, end: 20250301
  2. MINOXIDIL [Concomitant]
     Active Substance: MINOXIDIL
     Indication: Alopecia

REACTIONS (5)
  - Confusional state [Unknown]
  - Brain fog [Recovered/Resolved]
  - Memory impairment [Unknown]
  - Fatigue [Unknown]
  - Mental fatigue [Unknown]

NARRATIVE: CASE EVENT DATE: 20240316
